FAERS Safety Report 7250806-9 (Version None)
Quarter: 2011Q1

REPORT INFORMATION
  Report Type: 
  Country: None (occurrence: None)
  Receive Date: 20110128
  Receipt Date: 20110120
  Transmission Date: 20110831
  Serious: Yes (Death, Other)
  Sender: FDA-Public Use
  Company Number: IT-BRISTOL-MYERS SQUIBB COMPANY-15503667

PATIENT
  Age: 78 Year
  Sex: Female

DRUGS (3)
  1. FLUDARABINE PHOSPHATE [Suspect]
     Indication: CHRONIC LYMPHOCYTIC LEUKAEMIA
     Route: 065
  2. CYTOXAN [Suspect]
     Indication: CHRONIC LYMPHOCYTIC LEUKAEMIA
     Route: 065
  3. RITUXIMAB [Suspect]
     Indication: CHRONIC MYELOID LEUKAEMIA

REACTIONS (2)
  - NEOPLASM MALIGNANT [None]
  - AUTOIMMUNE THROMBOCYTOPENIA [None]
